FAERS Safety Report 9513855 (Version 1)
Quarter: 2013Q1

REPORT INFORMATION
  Report Type: Spontaneous
  Country: US (occurrence: None)
  Receive Date: 20130305
  Receipt Date: 20130305
  Transmission Date: 20140127
  Serious: Yes (Other)
  Sender: FDA-Public Use
  Company Number: 163-21880-12102618

PATIENT
  Age: 37 Year
  Sex: Female

DRUGS (18)
  1. REVLIMID (LENALIDOMIDE) (25 MILLIGRAM, CAPSULES) [Suspect]
     Indication: PLASMA CELL MYELOMA
     Dosage: 25 MG, 1 IN 1 D, PO
     Route: 048
     Dates: start: 200907, end: 2010
  2. ACYCLOVIR (ACICLOVIR) (UNKNOWN) [Concomitant]
  3. ALPHA LIPOIC ACID (THIOCTIC ACID) (UNKNOWN) [Concomitant]
  4. AMBIEN (ZOLPIDEM TARTRATE) (UNKNOWN) [Concomitant]
  5. ARTHOTEC (ARTHROTEC) (UNKNOWN) [Concomitant]
  6. ASPIRIN (ACETYLSALICYLIC ACID) (UNKNOWN) (ACETYLSALICYLIC ACID) [Concomitant]
  7. ELMIRON (PENTOSAN POLYSULFATE SODIUM) (UNKNOWN) [Concomitant]
  8. FLONASE (FLUTICASONE PROPIONATE) (UNKNOWN) [Concomitant]
  9. HYDROMET (ALDORIL) (UNKNOWN) [Concomitant]
  10. JOLIVET (NORETHISTERONE) (UNKNOWN) [Concomitant]
  11. LYRICA (PREGABALIN) (UNKNOWN) [Concomitant]
  12. MULTIVITAMINS (MULTIVITAMINS) (UNKNOWN) [Concomitant]
  13. OXYCODONE (OXYCODONE) (UNKNOWN) (OXYCODONE) [Concomitant]
  14. PERI-COLACE (PERI-COLACE) (UNKNOWN) [Concomitant]
  15. PHENERGAN (PROMETHAZINE HYDROCHLORIDE) (UNKNOWN) [Concomitant]
  16. POTASSIUM (POTASSIUM) (UNKNOWN) [Concomitant]
  17. ZANTAC (RANITIDINE HYDROCHLORIDE) (UNKNOWN) [Concomitant]
  18. ZYRTEC (CETIRIZINE HYDROCHLORIDE) (UNKNOWN) [Concomitant]

REACTIONS (1)
  - Bronchitis [None]
